FAERS Safety Report 16327728 (Version 2)
Quarter: 2019Q2

REPORT INFORMATION
  Report Type: Spontaneous
  Country: DE (occurrence: DE)
  Receive Date: 20190517
  Receipt Date: 20190524
  Transmission Date: 20190711
  Serious: Yes (Death, Other)
  Sender: FDA-Public Use
  Company Number: DE-B.I. PHARMACEUTICALS,INC./RIDGEFIELD-2019-BI-021803

PATIENT
  Age: 60 Year
  Sex: Female

DRUGS (7)
  1. DOCETAXEL. [Concomitant]
     Active Substance: DOCETAXEL
     Indication: PRODUCT USED FOR UNKNOWN INDICATION
     Dosage: DOSE - 75MG/SQUARE METER FOR 21 DAYS
     Route: 065
     Dates: start: 201404, end: 201408
  2. DOCETAXEL. [Concomitant]
     Active Substance: DOCETAXEL
     Dosage: DOSE - 30MG/SQUARE METER
     Route: 065
     Dates: start: 20140807
  3. GILOTRIF [Suspect]
     Active Substance: AFATINIB
     Indication: LUNG ADENOCARCINOMA
     Route: 065
     Dates: start: 201206, end: 201307
  4. GILOTRIF [Suspect]
     Active Substance: AFATINIB
     Route: 065
     Dates: start: 201307, end: 201404
  5. GILOTRIF [Suspect]
     Active Substance: AFATINIB
     Route: 065
     Dates: start: 201404, end: 201408
  6. GILOTRIF [Suspect]
     Active Substance: AFATINIB
     Route: 065
     Dates: start: 201307, end: 201307
  7. CETUXIMAB. [Concomitant]
     Active Substance: CETUXIMAB
     Indication: PRODUCT USED FOR UNKNOWN INDICATION
     Dosage: DOSE - 500MG/SQUARE METER
     Route: 065
     Dates: start: 201307, end: 201404

REACTIONS (5)
  - Malignant neoplasm progression [Unknown]
  - Off label use [Unknown]
  - Death [Fatal]
  - Non-small cell lung cancer metastatic [Unknown]
  - Skin toxicity [Unknown]

NARRATIVE: CASE EVENT DATE: 201206
